FAERS Safety Report 11665656 (Version 2)
Quarter: 2015Q4

REPORT INFORMATION
  Report Type: Report from Study
  Country: JP (occurrence: JP)
  Receive Date: 20151027
  Receipt Date: 20151027
  Transmission Date: 20160304
  Serious: No
  Sender: FDA-Public Use
  Company Number: JP-ALLERGAN-1521899JP

PATIENT
  Age: 41 Year
  Sex: Female
  Weight: 50 kg

DRUGS (1)
  1. BIMATOPROST 0.03% SOL-SKIN (9106X) [Suspect]
     Active Substance: BIMATOPROST
     Indication: GROWTH OF EYELASHES
     Dosage: UNK UNK, QD
     Route: 061
     Dates: start: 20150410

REACTIONS (1)
  - Lid sulcus deepened [Recovered/Resolved]

NARRATIVE: CASE EVENT DATE: 20150629
